FAERS Safety Report 11570202 (Version 1)
Quarter: 2015Q3

REPORT INFORMATION
  Report Type: Spontaneous
  Country: US (occurrence: US)
  Receive Date: 20150929
  Receipt Date: 20150929
  Transmission Date: 20151125
  Serious: No
  Sender: FDA-Public Use
  Company Number: US-PFIZER INC-2015310660

PATIENT
  Age: 61 Year
  Sex: Male
  Weight: 138 kg

DRUGS (10)
  1. VICTOZA [Concomitant]
     Active Substance: LIRAGLUTIDE
     Indication: DIABETES MELLITUS
     Dosage: 1.8 IU, DAILY, 1.8 UNITS IN THE MORNING
     Dates: start: 20000701
  2. ADVIL PM [Interacting]
     Active Substance: DIPHENHYDRAMINE CITRATE\IBUPROFEN
     Indication: MUSCLE STRAIN
     Dosage: 800 MG, DAILY
     Route: 048
     Dates: start: 201508
  3. TYLENOL PM EXTRA STRENGTH [Interacting]
     Active Substance: ACETAMINOPHEN\DIPHENHYDRAMINE HYDROCHLORIDE
     Indication: MUSCLE STRAIN
     Dosage: 500MG 3 CAPSULES AT BEDTIME
     Route: 048
     Dates: start: 201508
  4. OXCARBAZEPINE. [Concomitant]
     Active Substance: OXCARBAZEPINE
     Indication: MOOD SWINGS
     Dosage: 600 MG, 2X/ DAY, 600MG IN MORNING AND 600MG AT NIGHT
  5. LEVEMIR [Concomitant]
     Active Substance: INSULIN DETEMIR
     Indication: DIABETES MELLITUS
     Dosage: 46 IU, 2X/DAY, 46 UNITS IN MORNING AND 46 UNITS AT NIGHT
     Dates: start: 20000701
  6. HUMALOG [Concomitant]
     Active Substance: INSULIN LISPRO
     Indication: DIABETES MELLITUS
     Dosage: UNK, SLIDING SCALE
     Dates: start: 20000701
  7. CRESTOR [Concomitant]
     Active Substance: ROSUVASTATIN CALCIUM
     Dosage: 10MG AT NIGHT
  8. LISINOPRIL. [Concomitant]
     Active Substance: LISINOPRIL
     Indication: BLOOD PRESSURE ABNORMAL
     Dosage: 20 MG, DAILY, 20MG IN THE MORNING
  9. LITHIUM CARBONATE. [Concomitant]
     Active Substance: LITHIUM CARBONATE
     Indication: DEPRESSION
     Dosage: 300 MG, DAILY, 300MG AT NIGHT
  10. ADVIL [Suspect]
     Active Substance: IBUPROFEN
     Dosage: 800 MG TAKING THEM DURING THE DAYTIME
     Dates: start: 201508

REACTIONS (4)
  - Intentional product use issue [Not Recovered/Not Resolved]
  - Intentional product misuse [Not Recovered/Not Resolved]
  - Drug interaction [Recovering/Resolving]
  - Vertigo [Recovering/Resolving]

NARRATIVE: CASE EVENT DATE: 2015
